FAERS Safety Report 23372033 (Version 4)
Quarter: 2024Q3

REPORT INFORMATION
  Report Type: Spontaneous
  Country: US (occurrence: US)
  Receive Date: 20240105
  Receipt Date: 20240916
  Transmission Date: 20241017
  Serious: No
  Sender: PFIZER
  Company Number: US-PFIZER INC-202400002768

PATIENT
  Age: 22 Year
  Sex: Male
  Weight: 81.65 kg

DRUGS (1)
  1. OXBRYTA [Suspect]
     Active Substance: VOXELOTOR
     Indication: Sickle cell disease
     Dosage: 500MG/3 TABLETS ONCE DAILY
     Route: 048

REACTIONS (3)
  - Vomiting [Not Recovered/Not Resolved]
  - Alopecia [Unknown]
  - Onychoclasis [Unknown]
